FAERS Safety Report 12965233 (Version 1)
Quarter: 2016Q4

REPORT INFORMATION
  Report Type: Spontaneous
  Country: GB (occurrence: GB)
  Receive Date: 20161122
  Receipt Date: 20161122
  Transmission Date: 20170207
  Serious: Yes (Death)
  Sender: FDA-Public Use
  Company Number: GB-BAXTER-2016BAX048977

PATIENT
  Sex: Female
  Weight: 68 kg

DRUGS (1)
  1. DIANEAL [Suspect]
     Active Substance: CALCIUM CHLORIDE\DEXTROSE\MAGNESIUM CHLORIDE\SODIUM CHLORIDE\SODIUM LACTATE
     Indication: PERITONEAL DIALYSIS
     Dosage: 5000 (UNITS NOT REPORTED).
     Route: 033
     Dates: start: 201104, end: 20160916

REACTIONS (1)
  - General physical health deterioration [Fatal]
